FAERS Safety Report 7866407-5 (Version None)
Quarter: 2011Q4

REPORT INFORMATION
  Report Type: 
  Country: None (occurrence: None)
  Receive Date: 20111028
  Receipt Date: 20110613
  Transmission Date: 20120403
  Serious: No
  Sender: FDA-Public Use
  Company Number: US-GLAXOSMITHKLINE-A0931313A

PATIENT
  Age: 66 Year
  Sex: Female

DRUGS (5)
  1. ALBUTEROL SULFATE [Concomitant]
  2. ADVAIR DISKUS 100/50 [Suspect]
     Indication: ASTHMA
     Dosage: 1PUFF TWICE PER DAY
     Route: 055
     Dates: end: 20110608
  3. PREDNISONE [Concomitant]
  4. LISINOPRIL [Concomitant]
  5. CIPROFLOXACIN [Concomitant]

REACTIONS (3)
  - CHILLS [None]
  - PAIN [None]
  - INSOMNIA [None]
